FAERS Safety Report 4307572-6 (Version None)
Quarter: 2004Q1

REPORT INFORMATION
  Report Type: 
  Country: None (occurrence: None)
  Receive Date: 20040226
  Receipt Date: 20031227
  Transmission Date: 20041129
  Serious: Yes (Hospitalization, Other)
  Sender: FDA-Public Use
  Company Number: KII-2003-0007504

PATIENT
  Age: 86 Year
  Sex: Female

DRUGS (4)
  1. OXYCONTIN [Suspect]
     Indication: PAIN
     Dosage: ORAL
     Route: 048
  2. ACETAMINOPHEN W/OXYCODONE (PARACETAMOL, OXYCODONE HYDROCHLORIDE) [Suspect]
     Indication: PAIN
     Dosage: ORAL
     Route: 048
  3. BENZODIAZEPINE DERIVATIVES() [Suspect]
     Indication: PAIN
     Dosage: ORAL
     Route: 048
  4. QUININE (QUININE) [Suspect]
     Indication: PAIN IN EXTREMITY
     Dosage: ORAL
     Route: 048

REACTIONS (15)
  - AGITATION [None]
  - BLISTER [None]
  - BREATH SOUNDS DECREASED [None]
  - CEREBROVASCULAR ACCIDENT [None]
  - COMA [None]
  - CONFUSIONAL STATE [None]
  - CONTUSION [None]
  - DEPRESSED LEVEL OF CONSCIOUSNESS [None]
  - DRUG WITHDRAWAL SYNDROME [None]
  - FALL [None]
  - HYPERTENSION [None]
  - HYPOKALAEMIA [None]
  - MEDICATION ERROR [None]
  - MENTAL STATUS CHANGES [None]
  - OEDEMA PERIPHERAL [None]
